FAERS Safety Report 12878880 (Version 2)
Quarter: 2016Q4

REPORT INFORMATION
  Report Type: Spontaneous
  Country: US (occurrence: US)
  Receive Date: 20161024
  Receipt Date: 20161101
  Transmission Date: 20170207
  Serious: Yes (Hospitalization)
  Sender: FDA-Public Use
  Company Number: US-ACTELION-A-US2016-144002

PATIENT
  Age: 49 Year
  Sex: Female

DRUGS (12)
  1. LASIX [Concomitant]
     Active Substance: FUROSEMIDE
  2. LOMOTIL [Concomitant]
     Active Substance: ATROPINE SULFATE\DIPHENOXYLATE HYDROCHLORIDE
  3. DEPO-PROVERA [Concomitant]
     Active Substance: MEDROXYPROGESTERONE ACETATE
  4. METFORMIN [Concomitant]
     Active Substance: METFORMIN HYDROCHLORIDE
  5. CELEXA [Concomitant]
     Active Substance: CITALOPRAM HYDROBROMIDE
  6. WARFARIN [Concomitant]
     Active Substance: WARFARIN
  7. GLIMEPIRIDE. [Concomitant]
     Active Substance: GLIMEPIRIDE
  8. PRILOSEC [Concomitant]
     Active Substance: OMEPRAZOLE MAGNESIUM
  9. OPSUMIT [Suspect]
     Active Substance: MACITENTAN
     Indication: PULMONARY ARTERIAL HYPERTENSION
     Dosage: 10 MG, UNK
     Route: 048
     Dates: start: 20160705
  10. RIOCIGUAT [Concomitant]
     Active Substance: RIOCIGUAT
  11. LIPITOR [Concomitant]
     Active Substance: ATORVASTATIN CALCIUM
  12. CARVEDILOL. [Concomitant]
     Active Substance: CARVEDILOL

REACTIONS (4)
  - Dyspnoea [Unknown]
  - Renal impairment [Unknown]
  - Fluid retention [Unknown]
  - Pneumonia [Unknown]

NARRATIVE: CASE EVENT DATE: 20161011
